FAERS Safety Report 4622311-7 (Version None)
Quarter: 2005Q1

REPORT INFORMATION
  Report Type: 
  Country: None (occurrence: None)
  Receive Date: 20050328
  Receipt Date: 20050315
  Transmission Date: 20050727
  Serious: Yes (Hospitalization)
  Sender: FDA-Public Use
  Company Number: 2005042636

PATIENT
  Age: 34 Year
  Sex: Female

DRUGS (2)
  1. RELPAX [Suspect]
     Indication: MIGRAINE WITH AURA
     Dosage: ORAL
     Route: 048
     Dates: start: 20050211
  2. CYCLOSPORINE [Suspect]
     Indication: NEPHROTIC SYNDROME
     Dosage: ORAL
     Route: 048

REACTIONS (10)
  - BLOOD ALBUMIN INCREASED [None]
  - BLOOD CREATININE INCREASED [None]
  - BLOOD PRESSURE SYSTOLIC INCREASED [None]
  - CONDITION AGGRAVATED [None]
  - MIGRAINE [None]
  - NEPHROTIC SYNDROME [None]
  - OEDEMA [None]
  - OEDEMA PERIPHERAL [None]
  - PROTEINURIA [None]
  - WEIGHT INCREASED [None]
